FAERS Safety Report 4614719-0 (Version None)
Quarter: 2005Q2

REPORT INFORMATION
  Report Type: 
  Country: None (occurrence: None)
  Receive Date: 20050310
  Receipt Date: 20050131
  Transmission Date: 20051028
  Serious: Yes (Hospitalization)
  Sender: FDA-Public Use
  Company Number: A03200500305

PATIENT
  Age: 62 Year
  Sex: Male
  Weight: 59.8748 kg

DRUGS (7)
  1. ELOXATIN [Suspect]
     Indication: COLORECTAL CANCER METASTATIC
     Dosage: 100 MG OTHER - INTRAVENOUS NOS
     Route: 042
     Dates: start: 20050124, end: 20050124
  2. ELOXATIN [Suspect]
     Indication: METASTASES TO CENTRAL NERVOUS SYSTEM
     Dosage: 100 MG OTHER - INTRAVENOUS NOS
     Route: 042
     Dates: start: 20050124, end: 20050124
  3. ELOXATIN [Suspect]
     Indication: METASTASES TO LUNG
     Dosage: 100 MG OTHER - INTRAVENOUS NOS
     Route: 042
     Dates: start: 20050124, end: 20050124
  4. FLUOROURACIL [Concomitant]
  5. LEUCOVORIN CALCIUM [Concomitant]
  6. HYDROCORTISONE SODIUM SUCCINATE [Concomitant]
  7. PALONOSETRON [Concomitant]

REACTIONS (2)
  - HAEMATEMESIS [None]
  - THROMBOCYTOPENIA [None]
